FAERS Safety Report 12761982 (Version 2)
Quarter: 2016Q4

REPORT INFORMATION
  Report Type: Spontaneous
  Country: JP (occurrence: JP)
  Receive Date: 20160920
  Receipt Date: 20161129
  Transmission Date: 20170207
  Serious: Yes (Other)
  Sender: FDA-Public Use
  Company Number: JP-SUN PHARMACEUTICAL INDUSTRIES LTD-2016R1-124243

PATIENT
  Age: 75 Year
  Weight: 54 kg

DRUGS (12)
  1. PACLITAXEL. [Suspect]
     Active Substance: PACLITAXEL
     Indication: METASTASES TO LIVER
  2. 5-FLOUROURACIL [Suspect]
     Active Substance: FLUOROURACIL
     Indication: GASTRIC CANCER STAGE IV
     Dosage: 10 COURSES OF (600 MG/M2 ONCE PER WEEK FOLLOWED BY ONE WEEK OFF)
     Route: 065
     Dates: end: 2008
  3. TS-1 [Suspect]
     Active Substance: GIMERACIL\OTERACIL\TEGAFUR
     Indication: GASTRIC CANCER STAGE IV
     Dosage: UNK
     Route: 065
     Dates: start: 2005, end: 2007
  4. IRINOTECAN [Suspect]
     Active Substance: IRINOTECAN
     Indication: GASTRIC CANCER STAGE IV
     Dosage: 150 MG/M2 ADMINISTRATED FOR 2 WEEKS AND 2 WEEKS OFF (ONE COURSE HAD 4 WEEKS)
     Route: 065
     Dates: start: 2006, end: 2007
  5. METHOTREXATE. [Suspect]
     Active Substance: METHOTREXATE
     Indication: GASTRIC CANCER STAGE IV
     Dosage: 10 COURSES OF (100 MG/M2 ONCE PER WEEK FOLLOWED BY ONE WEEK OFF)
     Route: 065
  6. TS-1 [Suspect]
     Active Substance: GIMERACIL\OTERACIL\TEGAFUR
     Indication: METASTASES TO LIVER
  7. METHOTREXATE. [Suspect]
     Active Substance: METHOTREXATE
     Indication: METASTASES TO LIVER
  8. 5-FLOUROURACIL [Suspect]
     Active Substance: FLUOROURACIL
     Indication: METASTASES TO LIVER
  9. DOCETAXEL. [Suspect]
     Active Substance: DOCETAXEL
     Indication: METASTASES TO LIVER
  10. DOCETAXEL. [Suspect]
     Active Substance: DOCETAXEL
     Indication: GASTRIC CANCER STAGE IV
     Dosage: 5 MONTHS
     Route: 065
     Dates: start: 2007
  11. IRINOTECAN [Suspect]
     Active Substance: IRINOTECAN
     Indication: METASTASES TO LIVER
  12. PACLITAXEL. [Suspect]
     Active Substance: PACLITAXEL
     Indication: GASTRIC CANCER STAGE IV
     Dosage: 5 CYCLES OF (80 MG/M2 WAS ADMINISTRATED ONCE PER WEEK, THREE WEEKS ADMINISTRATION AND ONE WEEK OFF)
     Route: 065
     Dates: start: 2007

REACTIONS (5)
  - Bladder cancer [Recovering/Resolving]
  - Interstitial lung disease [Recovering/Resolving]
  - Pleural effusion [Recovering/Resolving]
  - Malignant neoplasm progression [Recovering/Resolving]
  - Therapeutic response decreased [Unknown]
